FAERS Safety Report 5656211-0 (Version None)
Quarter: 2008Q1

REPORT INFORMATION
  Report Type: 
  Country: None (occurrence: None)
  Receive Date: 20080305
  Receipt Date: 20080221
  Transmission Date: 20080703
  Serious: Yes (Other)
  Sender: FDA-Public Use
  Company Number: PAR_1376_2007

PATIENT
  Age: 27 Year
  Sex: Male

DRUGS (5)
  1. IBUPROFEN (IBUPROFEN) [Suspect]
     Indication: DRUG USE FOR UNKNOWN INDICATION
     Dosage: (DF)
     Dates: start: 20020820
  2. NUROFEN (NUROFEN-IBUPROFEN) (NOT SPECIFIED) [Suspect]
     Indication: DRUG USE FOR UNKNOWN INDICATION
     Dosage: (DF)
     Dates: start: 20020820
  3. CODEINE SUL TAB [Suspect]
     Indication: DRUG USE FOR UNKNOWN INDICATION
     Dosage: (DF)
     Dates: start: 20020820
  4. PAROXETINE HCL [Suspect]
     Indication: PHOBIA
     Dosage: (50 MG QD),(20 MG QD)
     Dates: start: 20020710
  5. LOFEPRAMINE (LOFEPRAMINE) [Suspect]
     Indication: DRUG USE FOR UNKNOWN INDICATION
     Dosage: (DF)

REACTIONS (7)
  - CONSTIPATION [None]
  - DRY MOUTH [None]
  - HOMICIDAL IDEATION [None]
  - MULTIPLE DRUG OVERDOSE INTENTIONAL [None]
  - SUICIDAL IDEATION [None]
  - SUICIDE ATTEMPT [None]
  - VISION BLURRED [None]
